FAERS Safety Report 6926153-9 (Version None)
Quarter: 2010Q3

REPORT INFORMATION
  Report Type: 
  Country: None (occurrence: None)
  Receive Date: 20100816
  Receipt Date: 20100805
  Transmission Date: 20110219
  Serious: Yes (Hospitalization)
  Sender: FDA-Public Use
  Company Number: FR-WYE-H16832210

PATIENT
  Sex: Female

DRUGS (10)
  1. PANTOPRAZOLE SODIUM [Suspect]
     Route: 048
     Dates: end: 20100421
  2. LASIX [Concomitant]
  3. KALEORID [Concomitant]
  4. OMACOR [Concomitant]
  5. ESCITALOPRAM OXALATE [Concomitant]
  6. ZYLORIC [Concomitant]
  7. PLAVIX [Concomitant]
  8. SINGULAIR [Concomitant]
  9. OFLOCET [Suspect]
     Route: 048
     Dates: start: 20100407, end: 20100414
  10. PRAVASTATIN SODIUM [Concomitant]

REACTIONS (3)
  - AGRANULOCYTOSIS [None]
  - ANAEMIA [None]
  - MYOCARDIAL INFARCTION [None]
